FAERS Safety Report 8923375 (Version 2)
Quarter: 2013Q1

REPORT INFORMATION
  Report Type: Spontaneous
  Country: GB (occurrence: GB)
  Receive Date: 20121124
  Receipt Date: 20130307
  Transmission Date: 20140127
  Serious: Yes (Other)
  Sender: FDA-Public Use
  Company Number: PHHY2012GB105793

PATIENT
  Age: 70 Year
  Sex: Female
  Weight: 72.2 kg

DRUGS (22)
  1. LANSOPRAZOLE [Suspect]
     Indication: GASTROOESOPHAGEAL REFLUX DISEASE
     Dosage: 30 MG
  2. LANSOPRAZOLE [Suspect]
     Indication: GASTRINOMA
  3. LANSOPRAZOLE [Suspect]
     Indication: DUODENAL ULCER
  4. LANSOPRAZOLE [Suspect]
     Indication: GASTRIC ULCER
  5. LANSOPRAZOLE [Suspect]
     Indication: ULCER
  6. IBUPROFEN [Suspect]
     Indication: RHEUMATOID ARTHRITIS
     Dosage: 1200 MG DAILY
  7. IBUPROFEN [Suspect]
     Indication: PYREXIA
  8. IBUPROFEN [Suspect]
     Indication: PAIN
  9. IBUPROFEN [Suspect]
     Indication: DYSMENORRHOEA
  10. IBUPROFEN [Suspect]
     Indication: PERICARDITIS
  11. IBUPROFEN [Suspect]
     Indication: PATENT DUCTUS ARTERIOSUS
  12. METFORMIN [Suspect]
     Indication: TYPE 2 DIABETES MELLITUS
     Dosage: 1000 MG DAILY
  13. LOPERAMIDE [Suspect]
     Indication: FUNCTIONAL GASTROINTESTINAL DISORDER
     Dosage: 2 MG (AS NEEDED WITH BOWEL SYMPTOMS)
  14. LOPERAMIDE [Suspect]
     Indication: DIARRHOEA
  15. LOPERAMIDE [Suspect]
     Indication: GASTRINOMA
  16. ATORVASTATIN [Suspect]
     Indication: DYSLIPIDAEMIA
     Dosage: 80 MG DAILY
  17. ATORVASTATIN [Suspect]
     Indication: PROPHYLAXIS
  18. CARBAMAZEPINE [Suspect]
     Indication: ANALGESIC THERAPY
     Dosage: 100 MG, QID
  19. CARBAMAZEPINE [Suspect]
     Indication: CONVULSION
  20. CARBAMAZEPINE [Suspect]
     Indication: NEURALGIA
  21. GLYCERYL TRINITRATE [Suspect]
     Indication: PROPHYLAXIS
     Dosage: 400 MICROGRAMS PER DOSE AS DIRECTED
     Route: 060
  22. ISOSORBIDE MONONITRATE [Suspect]
     Indication: ISCHAEMIC HEART DISEASE PROPHYLAXIS
     Dosage: 1 DF QD

REACTIONS (1)
  - Colitis microscopic [Not Recovered/Not Resolved]
